FAERS Safety Report 8682201 (Version 3)
Quarter: 2012Q4

REPORT INFORMATION
  Report Type: Report from Study
  Country: JP (occurrence: JP)
  Receive Date: 20120725
  Receipt Date: 20120904
  Transmission Date: 20130627
  Serious: Yes (Other)
  Sender: FDA-Public Use
  Company Number: JP-SANOFI-AVENTIS-2012SA051442

PATIENT
  Age: 38 Year
  Sex: Female

DRUGS (4)
  1. INSULIN GLULISINE [Suspect]
     Indication: DIABETES MELLITUS
     Dosage: 16-18-18
     Route: 058
     Dates: start: 20101008
  2. LANTUS [Concomitant]
     Indication: DIABETES MELLITUS
     Dosage: Dose:15 unit(s)
     Route: 058
     Dates: start: 20081017
  3. CRESTOR /UNK/ [Concomitant]
     Route: 048
     Dates: start: 20080528
  4. HYDROCHLOROTHIAZIDE/VALSARTAN [Concomitant]
     Route: 048
     Dates: start: 20110614

REACTIONS (1)
  - Renal disorder [Not Recovered/Not Resolved]
